FAERS Safety Report 6179147-8 (Version None)
Quarter: 2009Q2

REPORT INFORMATION
  Report Type: 
  Country: None (occurrence: None)
  Receive Date: 20090505
  Receipt Date: 20090424
  Transmission Date: 20091009
  Serious: Yes (Other)
  Sender: FDA-Public Use
  Company Number: PHHY2009GB16398

PATIENT
  Age: 64 Year
  Sex: Male

DRUGS (4)
  1. DICLOFENAC SODIUM [Suspect]
     Indication: RHEUMATOID ARTHRITIS
     Dosage: 50 MG, UNK
     Route: 048
     Dates: start: 20080428, end: 20090415
  2. GLUCOSAMINE SULFATE [Concomitant]
     Dosage: UNK
     Dates: start: 20080428
  3. IBUPROFEN [Concomitant]
     Dosage: 1 DF, TID
     Dates: start: 20090414
  4. TAMSULOSIN HCL [Concomitant]
     Dosage: 1 DF, QD
     Dates: start: 20081107

REACTIONS (2)
  - DYSGEUSIA [None]
  - TONGUE ULCERATION [None]
